FAERS Safety Report 17026343 (Version 1)
Quarter: 2019Q4

REPORT INFORMATION
  Report Type: Spontaneous
  Country: US (occurrence: US)
  Receive Date: 20191112
  Receipt Date: 20191112
  Transmission Date: 20200122
  Serious: No
  Sender: FDA-Public Use
  Company Number: None

PATIENT
  Age: 50 Year
  Sex: Male

DRUGS (1)
  1. OZEMPIC [Suspect]
     Active Substance: SEMAGLUTIDE
     Dosage: ?          OTHER FREQUENCY:WEEKLY;?
     Route: 057

REACTIONS (7)
  - Chills [None]
  - Abdominal discomfort [None]
  - Pain [None]
  - Nausea [None]
  - Diarrhoea [None]
  - Tremor [None]
  - Vomiting [None]

NARRATIVE: CASE EVENT DATE: 20191101
